FAERS Safety Report 6293416-2 (Version None)
Quarter: 2009Q3

REPORT INFORMATION
  Report Type: 
  Country: None (occurrence: None)
  Receive Date: 20090731
  Receipt Date: 20090720
  Transmission Date: 20100115
  Serious: No
  Sender: FDA-Public Use
  Company Number: US-ELI_LILLY_AND_COMPANY-US200907004916

PATIENT
  Age: 55 Year
  Sex: Female

DRUGS (4)
  1. CYMBALTA [Suspect]
     Dates: start: 20090201
  2. CELEBREX [Concomitant]
  3. PREVACID [Concomitant]
  4. ZANTAC [Concomitant]

REACTIONS (1)
  - HEPATIC ENZYME INCREASED [None]
